FAERS Safety Report 9661240 (Version 1)
Quarter: 2013Q4

REPORT INFORMATION
  Report Type: Spontaneous
  Country: US (occurrence: None)
  Receive Date: 20131030
  Receipt Date: 20131030
  Transmission Date: 20140711
  Serious: Yes (Disabling)
  Sender: FDA-Public Use
  Company Number: ACO_39164_2013

PATIENT
  Age: 63 Year
  Sex: Male
  Weight: 68 kg

DRUGS (14)
  1. AMPYRA (DALFAMPRIDINE) TABLET, 10MG [Suspect]
     Indication: GAIT DISTURBANCE
     Dates: start: 2013, end: 2013
  2. ASPIRIN (ACETYLSALICYLIC ACID) [Concomitant]
  3. BACLOFEN (BACLOFEN) [Concomitant]
  4. CALTRATE +D (CALCIUM CARBONATE, COLECALCIFEROL) [Concomitant]
  5. COLACE [Concomitant]
  6. FLOMAX (TAMSULOSIN HYDROCHLORIDE) [Concomitant]
  7. LACTULOSE (LACTULOSE) [Concomitant]
  8. LISINOPRIL (LISINOPRIL) [Concomitant]
  9. PERCOCET [Concomitant]
  10. SIMVASTATIN (SIMVASTATIN) [Concomitant]
  11. ULTRAM (TRAMADOL HYDROCHLORIDE) [Concomitant]
  12. PRILOSEC (OMEPRAZOLE MAGNESIUM) [Concomitant]
  13. WELLBUTRIN (BUPROPION HYDROCHLORIDE) [Concomitant]
  14. ZYPREXA (OLANZAPINE) [Concomitant]

REACTIONS (2)
  - Abasia [None]
  - Dysstasia [None]
